FAERS Safety Report 16063655 (Version 8)
Quarter: 2019Q3

REPORT INFORMATION
  Report Type: Report from Study
  Country: US (occurrence: US)
  Receive Date: 20190312
  Receipt Date: 20190828
  Transmission Date: 20191004
  Serious: No
  Sender: FDA-Public Use
  Company Number: PHEH2019US010414

PATIENT
  Age: 66 Year
  Sex: Female
  Weight: 58.96 kg

DRUGS (2)
  1. GLATOPA [Suspect]
     Active Substance: GLATIRAMER ACETATE
     Indication: MULTIPLE SCLEROSIS
     Dosage: 20 MG, QD (LEGS AND BACK OF HIPS)
     Route: 058
     Dates: start: 201812
  2. GLATOPA [Suspect]
     Active Substance: GLATIRAMER ACETATE
     Dosage: 20 MG, QD
     Route: 058

REACTIONS (8)
  - Injection site reaction [Unknown]
  - Device malfunction [Unknown]
  - Injection site pain [Unknown]
  - Weight decreased [Not Recovered/Not Resolved]
  - Needle issue [Unknown]
  - Device leakage [Unknown]
  - Incorrect dose administered [Unknown]
  - Weight increased [Not Recovered/Not Resolved]

NARRATIVE: CASE EVENT DATE: 20190509
